FAERS Safety Report 8570003 (Version 4)
Quarter: 2014Q2

REPORT INFORMATION
  Report Type: Report from Study
  Country: AU (occurrence: AU)
  Receive Date: 20120518
  Receipt Date: 20140530
  Transmission Date: 20141212
  Serious: Yes (Death, Hospitalization, Other)
  Sender: FDA-Public Use
  Company Number: AU-ROCHE-1068541

PATIENT
  Age: 82 Year
  Sex: Female

DRUGS (7)
  1. METHOXY POLYETHYLENE GLYCOL-EPOETIN BETA [Suspect]
     Indication: NEPHROGENIC ANAEMIA
     Dosage: DOSE:UNKNOWN
     Route: 058
     Dates: start: 20100413, end: 20120321
  2. ASPIRIN [Concomitant]
     Route: 065
  3. PARACETAMOL [Concomitant]
     Route: 065
  4. THYROXINE [Concomitant]
     Route: 065
  5. CHOLECALCIFEROL [Concomitant]
     Route: 065
  6. GLICLAZIDE [Concomitant]
  7. SANDOSTATINE [Concomitant]

REACTIONS (16)
  - Sepsis [Fatal]
  - Red blood cell sedimentation rate abnormal [Unknown]
  - Decreased appetite [Unknown]
  - Joint swelling [Unknown]
  - Urinary tract infection [Unknown]
  - Gastroenteritis [Unknown]
  - Infection [Unknown]
  - C-reactive protein increased [Unknown]
  - Diarrhoea [Recovered/Resolved]
  - Disorientation [Unknown]
  - Tongue discolouration [Unknown]
  - Peripheral swelling [Unknown]
  - C-reactive protein abnormal [Unknown]
  - White blood cell count abnormal [Unknown]
  - Urosepsis [Unknown]
  - Neutrophil count decreased [Unknown]
